FAERS Safety Report 12703537 (Version 1)
Quarter: 2016Q3

REPORT INFORMATION
  Report Type: Spontaneous
  Country: GB (occurrence: GB)
  Receive Date: 20160831
  Receipt Date: 20160831
  Transmission Date: 20161109
  Serious: Yes (Other)
  Sender: FDA-Public Use
  Company Number: GB-TEVA-687345ACC

PATIENT
  Age: 44 Year
  Sex: Female
  Weight: 87 kg

DRUGS (8)
  1. LEVOTHYROXINE. [Concomitant]
     Active Substance: LEVOTHYROXINE
  2. LORATADINE. [Concomitant]
     Active Substance: LORATADINE
  3. VENLAFAXINE [Suspect]
     Active Substance: VENLAFAXINE HYDROCHLORIDE
     Indication: DEPRESSION
     Dosage: VENLAFAXINE MR TABLETS 1X225MG AND 1X75MG EACH DAY
     Route: 048
     Dates: start: 20090921
  4. LANSOPRAZOLE. [Concomitant]
     Active Substance: LANSOPRAZOLE
  5. ATORVASTATIN [Concomitant]
     Active Substance: ATORVASTATIN
  6. COCODAMOL [Concomitant]
     Active Substance: ACETAMINOPHEN\CODEINE PHOSPHATE
  7. QUETIAPINE. [Concomitant]
     Active Substance: QUETIAPINE
  8. CERELLE [Concomitant]
     Active Substance: DESOGESTREL

REACTIONS (5)
  - Hypersensitivity [Unknown]
  - Angioedema [Not Recovered/Not Resolved]
  - Local swelling [Unknown]
  - Swelling face [Unknown]
  - Peripheral swelling [Unknown]

NARRATIVE: CASE EVENT DATE: 20150817
